FAERS Safety Report 9034187 (Version 1)
Quarter: 2013Q1

REPORT INFORMATION
  Report Type: Spontaneous
  Country: FR (occurrence: FR)
  Receive Date: 20130128
  Receipt Date: 20130128
  Transmission Date: 20140127
  Serious: Yes (Other)
  Sender: FDA-Public Use
  Company Number: FR-AMGEN-FRASP2011006513

PATIENT
  Age: 46 Year
  Sex: Male
  Weight: 81 kg

DRUGS (2)
  1. NPLATE [Suspect]
     Indication: IDIOPATHIC THROMBOCYTOPENIC PURPURA
     Dosage: 1 MUG/KG, UNK
     Dates: start: 20100504
  2. NPLATE [Suspect]
     Dosage: 4 MUG/KG, UNK

REACTIONS (1)
  - Drug ineffective [Unknown]
